FAERS Safety Report 7705974-9 (Version None)
Quarter: 2011Q3

REPORT INFORMATION
  Report Type: 
  Country: None (occurrence: None)
  Receive Date: 20110824
  Receipt Date: 20110817
  Transmission Date: 20111222
  Serious: Yes (Hospitalization)
  Sender: FDA-Public Use
  Company Number: PHHY2011US58356

PATIENT
  Age: 47 Year
  Sex: Male
  Weight: 100 kg

DRUGS (6)
  1. VIAGRA [Concomitant]
     Indication: ERECTILE DYSFUNCTION
     Dosage: 25 MG,DAILY
     Dates: start: 20080101
  2. ZANAFLEX [Concomitant]
     Indication: MUSCLE SPASMS
     Dosage: 44 MG, PRN
     Dates: start: 20110601
  3. INTERFERON BETA-1B [Suspect]
     Dosage: 0.3 MG, QOD
     Route: 058
     Dates: start: 20080201
  4. AMANTADINE HCL [Concomitant]
     Indication: FATIGUE
     Dosage: 200 MG, UNK
     Dates: start: 20100301, end: 20110816
  5. METOPROLOL [Concomitant]
     Indication: HYPERTENSION
     Dosage: 50 MG, DAILY
     Dates: start: 20110710
  6. LISINOPRIL [Concomitant]
     Indication: HYPERTENSION
     Dosage: 5 MG, DAILY
     Route: 048
     Dates: start: 20080101, end: 20110701

REACTIONS (4)
  - BLOOD PRESSURE FLUCTUATION [None]
  - DEPRESSION [None]
  - NIGHT SWEATS [None]
  - DEPRESSED MOOD [None]
